FAERS Safety Report 9036341 (Version 1)
Quarter: 2013Q1

REPORT INFORMATION
  Report Type: Spontaneous
  Country: US (occurrence: None)
  Receive Date: 20130123
  Receipt Date: 20130123
  Transmission Date: 20140127
  Serious: Yes (Hospitalization)
  Sender: FDA-Public Use
  Company Number: None

PATIENT
  Age: 57 Year
  Sex: Male

DRUGS (4)
  1. PEGASUS [Suspect]
     Indication: HEPATITIS C
  2. RIBAPAK [Suspect]
     Indication: HEPATITIS C
     Route: 048
  3. INVICEK [Concomitant]
  4. VERTEX [Concomitant]

REACTIONS (1)
  - Anaemia [None]
